FAERS Safety Report 24632347 (Version 1)
Quarter: 2024Q4

REPORT INFORMATION
  Report Type: Spontaneous
  Country: FR (occurrence: FR)
  Receive Date: 20241118
  Receipt Date: 20241118
  Transmission Date: 20250115
  Serious: Yes (Hospitalization)
  Sender: TEVA
  Company Number: None

PATIENT
  Age: 48 Year
  Sex: Female

DRUGS (4)
  1. ALPRAZOLAM [Suspect]
     Active Substance: ALPRAZOLAM
     Indication: Product used for unknown indication
     Route: 048
     Dates: start: 1996
  2. CANNABIS SATIVA SUBSP. INDICA TOP [Suspect]
     Active Substance: CANNABIS SATIVA SUBSP. INDICA TOP
     Indication: Product used for unknown indication
     Dosage: UP TO 25 JOINTS PER DAY
     Route: 065
     Dates: start: 1996, end: 2015
  3. CANNABIS SATIVA SUBSP. INDICA TOP [Suspect]
     Active Substance: CANNABIS SATIVA SUBSP. INDICA TOP
     Indication: Product used for unknown indication
     Dosage: 5 JOINTS PER DAY
     Route: 065
     Dates: start: 2018
  4. ALCOHOL [Suspect]
     Active Substance: ALCOHOL
     Indication: Product used for unknown indication
     Dosage: ALCOOL (BOISSON)
     Route: 048
     Dates: start: 2001, end: 202404

REACTIONS (4)
  - Drug abuse [Not Recovered/Not Resolved]
  - Generalised anxiety disorder [Recovering/Resolving]
  - Condition aggravated [Recovering/Resolving]
  - Cognitive disorder [Recovering/Resolving]
